FAERS Safety Report 7654358-0 (Version None)
Quarter: 2011Q3

REPORT INFORMATION
  Report Type: 
  Country: None (occurrence: None)
  Receive Date: 20110803
  Receipt Date: 20110729
  Transmission Date: 20111222
  Serious: Yes (Other)
  Sender: FDA-Public Use
  Company Number: CO-PFIZER INC-2011092222

PATIENT
  Age: 72 Year
  Sex: Female

DRUGS (7)
  1. METHOTREXATE [Concomitant]
     Dosage: UNK
  2. AZATHIOPRINE [Concomitant]
     Dosage: 50 MG, UNK
  3. TOLTERODINE TARTRATE [Suspect]
     Indication: URINARY INCONTINENCE
     Dosage: 4 MG, 1X/DAY
     Route: 048
     Dates: start: 20110301
  4. LYRICA [Concomitant]
     Indication: FIBROMYALGIA
     Dosage: UNK
  5. LIPITOR [Concomitant]
     Indication: HYPERCHOLESTEROLAEMIA
     Dosage: UNK
  6. CHLOROQUINE [Concomitant]
     Dosage: UNK
  7. MOTRIN [Concomitant]

REACTIONS (4)
  - HERPES VIRUS INFECTION [None]
  - DYSURIA [None]
  - GINGIVAL ABSCESS [None]
  - URINARY TRACT INFECTION [None]
